FAERS Safety Report 7929037-2 (Version None)
Quarter: 2011Q4

REPORT INFORMATION
  Report Type: 
  Country: None (occurrence: None)
  Receive Date: 20111118
  Receipt Date: 20110215
  Transmission Date: 20120403
  Serious: No
  Sender: FDA-Public Use
  Company Number: US-AMGEN-TCS402293

PATIENT
  Age: 57 Year
  Sex: Female

DRUGS (2)
  1. ENBREL [Suspect]
     Indication: ANKYLOSING SPONDYLITIS
     Dosage: 50 MG, QWK
     Route: 058
     Dates: start: 20070201
  2. PLAQUENIL [Concomitant]
     Dosage: UNK UNK, UNK

REACTIONS (10)
  - INJECTION SITE HAEMATOMA [None]
  - ANKYLOSING SPONDYLITIS [None]
  - GAIT DISTURBANCE [None]
  - RASH [None]
  - EYE INFECTION [None]
  - BLISTER [None]
  - DIARRHOEA [None]
  - PRURITUS [None]
  - ERYTHEMA [None]
  - INCREASED TENDENCY TO BRUISE [None]
